FAERS Safety Report 5942245-5 (Version None)
Quarter: 2008Q4

REPORT INFORMATION
  Report Type: 
  Country: None (occurrence: None)
  Receive Date: 20081105
  Receipt Date: 20081027
  Transmission Date: 20090506
  Serious: Yes (Other)
  Sender: FDA-Public Use
  Company Number: US-JNJCH-2008053115

PATIENT
  Age: 55 Year
  Sex: Male
  Weight: 81.6 kg

DRUGS (2)
  1. ROGAINE 5% FOAM [Suspect]
     Indication: ALOPECIA
     Dosage: TEXT:UNSPECIFIED DOSE APPLIED TWICE DAILY
     Route: 061
  2. LIPITOR [Concomitant]
     Indication: BLOOD CHOLESTEROL INCREASED
     Dosage: TEXT:1 TABLET
     Route: 048

REACTIONS (1)
  - HYPERTENSION [None]
